FAERS Safety Report 4802445-4 (Version None)
Quarter: 2005Q4

REPORT INFORMATION
  Report Type: 
  Country: None (occurrence: None)
  Receive Date: 20051014
  Receipt Date: 20041025
  Transmission Date: 20060501
  Serious: Yes (Other)
  Sender: FDA-Public Use
  Company Number: 2004083539

PATIENT
  Sex: Female

DRUGS (1)
  1. NEURONTIN [Suspect]
     Indication: EYE PAIN
     Dosage: 300 MG (1 D)
     Dates: start: 20000822, end: 20030122

REACTIONS (12)
  - AGGRESSION [None]
  - AMNESIA [None]
  - ANXIETY [None]
  - DEPRESSION [None]
  - DISTURBANCE IN ATTENTION [None]
  - DIZZINESS [None]
  - DRUG INEFFECTIVE [None]
  - HOSTILITY [None]
  - MOOD SWINGS [None]
  - NAUSEA [None]
  - SOMNOLENCE [None]
  - SUICIDAL IDEATION [None]
